FAERS Safety Report 23147385 (Version 1)
Quarter: 2023Q4

REPORT INFORMATION
  Report Type: Spontaneous
  Country: IT (occurrence: IT)
  Receive Date: 20231106
  Receipt Date: 20231106
  Transmission Date: 20240110
  Serious: Yes (Other)
  Sender: FDA-Public Use
  Company Number: IT-ELI_LILLY_AND_COMPANY-IT202009005146

PATIENT
  Age: 25 Year
  Sex: Male

DRUGS (4)
  1. OLANZAPINE [Suspect]
     Active Substance: OLANZAPINE
     Indication: Psychotic disorder
     Dosage: 1 DOSAGE FORM, BID?DAILY DOSE: 2 DOSAGE FORM
     Dates: start: 2000
  2. OLANZAPINE [Suspect]
     Active Substance: OLANZAPINE
     Indication: Psychotic disorder
     Dosage: 1 DOSAGE FORM, TID?DAILY DOSE: 3 DOSAGE FORM
     Dates: start: 2006, end: 2015
  3. Prozin [Concomitant]
     Indication: Product used for unknown indication
  4. Tavor [Concomitant]
     Indication: Product used for unknown indication

REACTIONS (14)
  - Neuropathy peripheral [Unknown]
  - Blood triglycerides increased [Unknown]
  - Feeding disorder [Unknown]
  - Eye pain [Unknown]
  - Tongue discolouration [Unknown]
  - Weight increased [Unknown]
  - Tongue injury [Unknown]
  - Pain in extremity [Unknown]
  - Tooth loss [Unknown]
  - Headache [Unknown]
  - Cerebral disorder [Unknown]
  - Hepatic steatosis [Unknown]
  - Fibromyalgia [Unknown]
  - Off label use [Unknown]
